FAERS Safety Report 25040971 (Version 3)
Quarter: 2025Q2

REPORT INFORMATION
  Report Type: Spontaneous
  Country: JP (occurrence: JP)
  Receive Date: 20250305
  Receipt Date: 20250411
  Transmission Date: 20250717
  Serious: Yes (Other)
  Sender: NOVARTIS
  Company Number: JP-002147023-NVSJ2025JP002667

PATIENT
  Age: 60 Year
  Sex: Male

DRUGS (1)
  1. TISAGENLECLEUCEL [Suspect]
     Active Substance: TISAGENLECLEUCEL
     Indication: Diffuse large B-cell lymphoma stage IV
     Route: 065

REACTIONS (4)
  - Laryngeal oedema [Recovered/Resolved]
  - Dysphonia [Recovered/Resolved]
  - Cytokine release syndrome [Unknown]
  - Pyrexia [Unknown]
